FAERS Safety Report 5030056-7 (Version None)
Quarter: 2006Q2

REPORT INFORMATION
  Report Type: 
  Country: None (occurrence: None)
  Receive Date: 20060620
  Receipt Date: 20060619
  Transmission Date: 20061013
  Serious: Yes (Hospitalization, Other)
  Sender: FDA-Public Use
  Company Number: US-BRISTOL-MYERS SQUIBB COMPANY-13416599

PATIENT
  Sex: Male

DRUGS (1)
  1. COUMADIN [Suspect]
     Dates: start: 20051201

REACTIONS (6)
  - AGEUSIA [None]
  - ANOSMIA [None]
  - DYSGEUSIA [None]
  - MALNUTRITION [None]
  - MOVEMENT DISORDER [None]
  - WEIGHT DECREASED [None]
